FAERS Safety Report 5183336-9 (Version None)
Quarter: 2006Q4

REPORT INFORMATION
  Report Type: 
  Country: None (occurrence: None)
  Receive Date: 20061220
  Receipt Date: 20060109
  Transmission Date: 20070319
  Serious: No
  Sender: FDA-Public Use
  Company Number: US-GLAXOSMITHKLINE-A0588291A

PATIENT
  Age: 38 Year
  Sex: Female

DRUGS (2)
  1. EQUATE NTS 21MG [Suspect]
     Indication: SMOKING CESSATION THERAPY
     Dates: start: 20060106
  2. NICOTINE [Suspect]
     Indication: SMOKING CESSATION THERAPY

REACTIONS (7)
  - APPLICATION SITE BRUISING [None]
  - APPLICATION SITE ERYTHEMA [None]
  - APPLICATION SITE PRURITUS [None]
  - APPLICATION SITE URTICARIA [None]
  - APPLICATION SITE VESICLES [None]
  - APPLICATION SITE WARMTH [None]
  - HEADACHE [None]
